FAERS Safety Report 8942625 (Version 2)
Quarter: 2012Q4

REPORT INFORMATION
  Report Type: 
  Country: CA (occurrence: CA)
  Receive Date: 20121204
  Receipt Date: 20121221
  Transmission Date: 20130627
  Serious: Yes (Hospitalization)
  Sender: FDA-Public Use
  Company Number: CA-BAYER-2012-123954

PATIENT
  Age: 45 Year
  Sex: Female
  Weight: 54.42 kg

DRUGS (1)
  1. MIRENA [Suspect]
     Indication: CONTRACEPTION
     Dosage: 20 mcg/24hr, CONT
     Route: 015
     Dates: start: 20121029, end: 20121123

REACTIONS (3)
  - Drug-induced liver injury [Unknown]
  - Ocular icterus [Unknown]
  - Pruritus [Unknown]
